FAERS Safety Report 15572083 (Version 2)
Quarter: 2018Q4

REPORT INFORMATION
  Report Type: Spontaneous
  Country: US (occurrence: US)
  Receive Date: 20181031
  Receipt Date: 20181106
  Transmission Date: 20190205
  Serious: Yes (Hospitalization, Other)
  Sender: FDA-Public Use
  Company Number: US-EMMAUS MEDICAL, INC.-EMM201808-000458

PATIENT
  Sex: Male

DRUGS (1)
  1. ENDARI [Suspect]
     Active Substance: GLUTAMINE
     Indication: SICKLE CELL DISEASE
     Dosage: 10 G IN MORNING AND SECOND 10 G 12 H LATER
     Route: 048
     Dates: start: 20180405

REACTIONS (8)
  - Pancreatic neuroendocrine tumour [Unknown]
  - Pyrexia [Unknown]
  - Drug interaction [Unknown]
  - Sickle cell anaemia with crisis [Unknown]
  - Dehydration [Unknown]
  - Blood glucose increased [Unknown]
  - Rotator cuff syndrome [Unknown]
  - Degenerative bone disease [Unknown]

NARRATIVE: CASE EVENT DATE: 2018
